FAERS Safety Report 4681342-1 (Version None)
Quarter: 2005Q2

REPORT INFORMATION
  Report Type: 
  Country: None (occurrence: None)
  Receive Date: 20050603
  Receipt Date: 20010904
  Transmission Date: 20051028
  Serious: Yes (Death, Hospitalization, Other)
  Sender: FDA-Public Use
  Company Number: US-AMGEN-01090092

PATIENT
  Sex: Female
  Weight: 74.84 kg

DRUGS (12)
  1. ENBREL [Suspect]
     Indication: RHEUMATOID ARTHRITIS
     Route: 058
     Dates: start: 19990525, end: 20010511
  2. ENBREL [Suspect]
  3. HYDROXYCHLOROQUINE SULFATE [Concomitant]
     Dates: start: 19910101
  4. ALPRAZOLAM [Concomitant]
     Dates: start: 20010501
  5. IRON [Concomitant]
  6. ALLOPURINOL [Concomitant]
     Dates: start: 20010501
  7. A.P.C. WITH PROPOXYPHENE [Concomitant]
     Dates: start: 20010501
  8. PROCHLORPERAZINE [Concomitant]
     Dates: start: 20010501
  9. FOSAMAX [Concomitant]
  10. VITAMIN B-12 [Concomitant]
  11. CARDIZEM [Concomitant]
  12. CALCIUM GLUCONATE [Concomitant]

REACTIONS (6)
  - FALL [None]
  - INJURY [None]
  - LEUKAEMIA [None]
  - MULTIPLE MYELOMA [None]
  - OEDEMA PERIPHERAL [None]
  - WEIGHT DECREASED [None]
